FAERS Safety Report 12876757 (Version 1)
Quarter: 2016Q4

REPORT INFORMATION
  Report Type: Report from Study
  Country: US (occurrence: US)
  Receive Date: 20161024
  Receipt Date: 20161024
  Transmission Date: 20170207
  Serious: Yes (Hospitalization, Other)
  Sender: FDA-Public Use
  Company Number: US-JNJFOC-20161019027

PATIENT
  Sex: Male

DRUGS (8)
  1. IMBRUVICA [Suspect]
     Active Substance: IBRUTINIB
     Indication: NON-HODGKIN^S LYMPHOMA
     Route: 048
     Dates: start: 20160714
  2. BENZONATATE. [Concomitant]
     Active Substance: BENZONATATE
  3. VENTOLIN [Concomitant]
     Active Substance: ALBUTEROL SULFATE
  4. PRAVACHOL [Concomitant]
     Active Substance: PRAVASTATIN SODIUM
  5. CEFTIN [Concomitant]
     Active Substance: CEFUROXIME AXETIL
  6. METOPROLOL. [Concomitant]
     Active Substance: METOPROLOL
  7. PRESERVISION AREDS [Concomitant]
     Active Substance: MINERALS\VITAMINS
  8. MUCINEX DM [Concomitant]
     Active Substance: DEXTROMETHORPHAN HYDROBROMIDE\GUAIFENESIN

REACTIONS (2)
  - Macular degeneration [Unknown]
  - Infection [Unknown]
